FAERS Safety Report 21916832 (Version 1)
Quarter: 2023Q1

REPORT INFORMATION
  Report Type: Spontaneous
  Country: None (occurrence: US)
  Receive Date: 20230126
  Receipt Date: 20230126
  Transmission Date: 20230418
  Serious: Yes (Other)
  Sender: FDA-Public Use
  Company Number: US-GREER Laboratories, Inc.-2137098

PATIENT
  Age: 16 Year
  Sex: Male
  Weight: 76.2 kg

DRUGS (18)
  1. STANDARDIZED MITE, DERMATOPHAGOIDES FARINAE [Suspect]
     Active Substance: DERMATOPHAGOIDES FARINAE
     Indication: Rhinitis allergic
     Route: 058
     Dates: start: 20220419, end: 20221110
  2. STANDARDIZED MITE, DERMATOPHAGOIDES PTERONYSSINUS [Suspect]
     Active Substance: DERMATOPHAGOIDES PTERONYSSINUS
     Route: 058
     Dates: start: 20220419, end: 20221110
  3. STANDARDIZED CAT HAIR [Suspect]
     Active Substance: FELIS CATUS HAIR
     Route: 058
     Dates: start: 20220419, end: 20221110
  4. HACKBERRY POLLEN [Suspect]
     Active Substance: CELTIS OCCIDENTALIS POLLEN
     Route: 058
     Dates: start: 20220419, end: 20221110
  5. RIVER BIRCH POLLEN [Suspect]
     Active Substance: BETULA NIGRA POLLEN
     Route: 058
     Dates: start: 20220419, end: 20221110
  6. SHAGBARK HICKORY POLLEN [Suspect]
     Active Substance: CARYA OVATA POLLEN
     Route: 058
     Dates: start: 20220419, end: 20221110
  7. WHITE OAK POLLEN [Suspect]
     Active Substance: QUERCUS ALBA POLLEN
     Route: 058
     Dates: start: 20220419, end: 20221110
  8. WHITE POPLAR POLLEN [Suspect]
     Active Substance: POPULUS ALBA POLLEN
     Route: 058
     Dates: start: 20220419, end: 20221110
  9. JOHNSON GRASS POLLEN [Suspect]
     Active Substance: SORGHUM HALEPENSE POLLEN
     Route: 058
     Dates: start: 20220419, end: 20221110
  10. STANDARDIZED TIMOTHY GRASS [Suspect]
     Active Substance: PHLEUM PRATENSE POLLEN
     Route: 058
     Dates: start: 20220419, end: 20221110
  11. ALFALFA POLLEN [Suspect]
     Active Substance: MEDICAGO SATIVA POLLEN
     Route: 058
     Dates: start: 20220419, end: 20221110
  12. FIREBUSH KOCHIA POLLEN [Suspect]
     Active Substance: BASSIA SCOPARIA POLLEN
     Route: 058
     Dates: start: 20220419, end: 20221110
  13. LAMBS QUARTERS POLLEN [Suspect]
     Active Substance: CHENOPODIUM ALBUM POLLEN
     Route: 058
     Dates: start: 20220419, end: 20221110
  14. FEXOFENADINE [Concomitant]
     Active Substance: FEXOFENADINE HYDROCHLORIDE
     Route: 048
  15. FLONASE [Concomitant]
     Active Substance: FLUTICASONE PROPIONATE
     Route: 045
  16. CLINDAMYCIN [Concomitant]
     Active Substance: CLINDAMYCIN
     Route: 061
  17. TRETINOIN [Concomitant]
     Active Substance: TRETINOIN
     Route: 061
  18. MULTIVITAMIN UNSPECIFIED [Concomitant]

REACTIONS (3)
  - Hypersensitivity [Recovered/Resolved]
  - Chest discomfort [Recovered/Resolved]
  - Chest discomfort [Recovered/Resolved]

NARRATIVE: CASE EVENT DATE: 20221110
